FAERS Safety Report 19921537 (Version 1)
Quarter: 2021Q4

REPORT INFORMATION
  Report Type: Spontaneous
  Country: FR (occurrence: FR)
  Receive Date: 20211006
  Receipt Date: 20211006
  Transmission Date: 20220303
  Serious: Yes (Hospitalization, Other)
  Sender: FDA-Public Use
  Company Number: FR-AFSSAPS-GR20214155

PATIENT
  Age: 18 Year
  Sex: Male
  Weight: 72 kg

DRUGS (2)
  1. MIANSERIN [Suspect]
     Active Substance: MIANSERIN
     Indication: Intentional overdose
     Dosage: 45 DOSAGE FORM, UNK
     Route: 048
     Dates: start: 20210605, end: 20210605
  2. ACETAMINOPHEN [Suspect]
     Active Substance: ACETAMINOPHEN
     Indication: Intentional overdose
     Dosage: 20 GRAMS, UNK
     Route: 048
     Dates: start: 20210605, end: 20210605

REACTIONS (4)
  - Hepatitis fulminant [Recovered/Resolved]
  - Somnolence [Recovered/Resolved]
  - Poisoning deliberate [Recovered/Resolved]
  - Acute hepatic failure [Recovered/Resolved]

NARRATIVE: CASE EVENT DATE: 20210605
